FAERS Safety Report 9427757 (Version 1)
Quarter: 2013Q3

REPORT INFORMATION
  Report Type: Report from Study
  Country: US (occurrence: US)
  Receive Date: 20130730
  Receipt Date: 20130730
  Transmission Date: 20140515
  Serious: No
  Sender: FDA-Public Use
  Company Number: US-ABBOTT-12P-163-0990245-00

PATIENT
  Sex: Male

DRUGS (5)
  1. NIASPAN (COATED) [Suspect]
     Dosage: AT BEDTIME FOR ONE YEAR
     Route: 048
  2. NIASPAN (COATED) [Suspect]
     Dosage: INCREASED TO 2 PER ORAL AT BEDTIME
     Route: 048
  3. NIASPAN (COATED) [Suspect]
     Dosage: AT BEDTIME
     Route: 048
  4. ASPIRIN [Concomitant]
     Indication: PRODUCT USED FOR UNKNOWN INDICATION
     Dosage: WITH DOSE OF NIASPAN
     Route: 048
  5. OTHER UNKNOWN MEDICATIONS [Concomitant]
     Indication: PRODUCT USED FOR UNKNOWN INDICATION

REACTIONS (1)
  - Feeling hot [Not Recovered/Not Resolved]
